FAERS Safety Report 12216549 (Version 3)
Quarter: 2016Q2

REPORT INFORMATION
  Report Type: Spontaneous
  Country: US (occurrence: US)
  Receive Date: 20160329
  Receipt Date: 20160419
  Transmission Date: 20160815
  Serious: Yes (Hospitalization)
  Sender: FDA-Public Use
  Company Number: US-UNITED THERAPEUTICS-UNT-2016-004641

PATIENT
  Age: 40 Year
  Sex: Female
  Weight: 77.98 kg

DRUGS (1)
  1. REMODULIN [Suspect]
     Active Substance: TREPROSTINIL
     Indication: PULMONARY HYPERTENSION
     Dosage: 0.040 ?G/KG, CONTINUING
     Route: 041
     Dates: start: 20080514

REACTIONS (6)
  - Heart rate increased [Not Recovered/Not Resolved]
  - Device related infection [Unknown]
  - Pyrexia [Not Recovered/Not Resolved]
  - Sepsis [Unknown]
  - Accidental overdose [Recovering/Resolving]
  - Drug administration error [Unknown]

NARRATIVE: CASE EVENT DATE: 201603
